FAERS Safety Report 4997148-X (Version None)
Quarter: 2006Q2

REPORT INFORMATION
  Report Type: 
  Country: None (occurrence: None)
  Receive Date: 20060505
  Receipt Date: 20060505
  Transmission Date: 20061013
  Serious: No
  Sender: FDA-Public Use
  Company Number: None

PATIENT
  Age: 24 Year
  Sex: Female
  Weight: 52.1637 kg

DRUGS (1)
  1. DESOGEN [Suspect]
     Indication: MENSTRUAL DISORDER
     Dosage: 0.15 MG /0.03 MG DAILY PO
     Route: 048
     Dates: start: 20051204, end: 20060422

REACTIONS (3)
  - MENORRHAGIA [None]
  - METRORRHAGIA [None]
  - PHARMACEUTICAL PRODUCT COMPLAINT [None]
